FAERS Safety Report 6883408-4 (Version None)
Quarter: 2010Q3

REPORT INFORMATION
  Report Type: 
  Country: None (occurrence: None)
  Receive Date: 20100729
  Receipt Date: 20100716
  Transmission Date: 20110219
  Serious: Yes (Hospitalization)
  Sender: FDA-Public Use
  Company Number: ES-ELI_LILLY_AND_COMPANY-ES201007005145

PATIENT
  Sex: Female
  Weight: 72 kg

DRUGS (3)
  1. FORTEO [Suspect]
     Indication: OSTEOPOROSIS
     Dosage: 20 UG, DAILY (1/D)
     Route: 058
     Dates: start: 20090323, end: 20100501
  2. INSULINA /01223201/ [Concomitant]
     Indication: DIABETES MELLITUS
     Dosage: UNK, UNKNOWN
     Route: 048
  3. SEGURIL [Concomitant]
     Indication: DIURETIC THERAPY
     Dosage: 1 D/F, EVERY 12 HOURS
     Route: 048

REACTIONS (2)
  - ACUTE PULMONARY OEDEMA [None]
  - RESPIRATORY DISORDER [None]
